FAERS Safety Report 23565733 (Version 2)
Quarter: 2024Q1

REPORT INFORMATION
  Report Type: Report from Study
  Country: GB (occurrence: GB)
  Receive Date: 20240226
  Receipt Date: 20240304
  Transmission Date: 20240409
  Serious: Yes (Hospitalization, Other)
  Sender: FDA-Public Use
  Company Number: GB-002147023-NVSC2020GB175136

PATIENT
  Sex: Male

DRUGS (4)
  1. OMNITROPE [Suspect]
     Active Substance: SOMATROPIN
     Indication: Growth hormone deficiency
     Dosage: 0.6 MG, QN (NOCTE)
     Route: 058
  2. OMNITROPE [Suspect]
     Active Substance: SOMATROPIN
     Dosage: 0.7 MG, QD, (ROUTE: AS DIRECTED)
     Route: 058
  3. OMNITROPE [Suspect]
     Active Substance: SOMATROPIN
     Indication: Hypopituitarism
     Dosage: 0.7 MG, QN (NOCTE)
     Route: 058
  4. OMNITROPE [Suspect]
     Active Substance: SOMATROPIN
     Dosage: 0.7 MG, (IN THE EVENING FOR 168 DAYS)
     Route: 058

REACTIONS (8)
  - Lower respiratory tract infection [Unknown]
  - Brain neoplasm [Unknown]
  - Asthma [Unknown]
  - Asthenia [Unknown]
  - Illness [Unknown]
  - Product distribution issue [Unknown]
  - Product dose omission issue [Unknown]
  - Incorrect dose administered [Unknown]
